FAERS Safety Report 23653667 (Version 2)
Quarter: 2024Q1

REPORT INFORMATION
  Report Type: Report from Study
  Country: US (occurrence: US)
  Receive Date: 20240320
  Receipt Date: 20240322
  Transmission Date: 20240409
  Serious: Yes (Other)
  Sender: FDA-Public Use
  Company Number: US-ABBVIE-5430305

PATIENT
  Sex: Female

DRUGS (1)
  1. SKYRIZI [Suspect]
     Active Substance: RISANKIZUMAB-RZAA
     Indication: Crohn^s disease
     Route: 042
     Dates: start: 20230825

REACTIONS (7)
  - Small intestinal obstruction [Unknown]
  - Gastrointestinal motility disorder [Recovering/Resolving]
  - Gastrointestinal scarring [Unknown]
  - Gastrointestinal inflammation [Unknown]
  - Faecal calprotectin increased [Not Recovered/Not Resolved]
  - Fat tissue increased [Unknown]
  - Feeling abnormal [Unknown]

NARRATIVE: CASE EVENT DATE: 20230101
